FAERS Safety Report 5335132-7 (Version None)
Quarter: 2007Q2

REPORT INFORMATION
  Report Type: 
  Country: None (occurrence: None)
  Receive Date: 20070525
  Receipt Date: 20070515
  Transmission Date: 20071010
  Serious: Yes (Hospitalization, Other)
  Sender: FDA-Public Use
  Company Number: JP-ABBOTT-98P-087-0062781-00

PATIENT
  Age: 22 Year
  Sex: Male

DRUGS (11)
  1. DEPAKENE [Suspect]
     Indication: MYOCLONIC EPILEPSY
  2. DEPAKENE [Suspect]
  3. DEPAKENE [Suspect]
  4. DEPAKENE [Suspect]
  5. DEPAKENE [Suspect]
  6. DEPAKENE [Suspect]
  7. DEPAKENE [Suspect]
  8. PANIPENEM-BETAMIPRON [Suspect]
     Indication: DRUG USE FOR UNKNOWN INDICATION
  9. CLONAZEPAM [Concomitant]
     Indication: DRUG USE FOR UNKNOWN INDICATION
  10. L-DOPA [Concomitant]
     Indication: DRUG USE FOR UNKNOWN INDICATION
  11. PHENYTOIN [Concomitant]
     Indication: DRUG USE FOR UNKNOWN INDICATION

REACTIONS (6)
  - CONDITION AGGRAVATED [None]
  - CONVULSION [None]
  - DRUG INTERACTION [None]
  - DRUG LEVEL DECREASED [None]
  - MYOCLONUS [None]
  - PNEUMONIA [None]
